FAERS Safety Report 23739780 (Version 1)
Quarter: 2024Q2

REPORT INFORMATION
  Report Type: Report from Study
  Country: US (occurrence: None)
  Receive Date: 20240414
  Receipt Date: 20240414
  Transmission Date: 20240716
  Serious: Yes (Death, Hospitalization)
  Sender: FDA-Public Use
  Company Number: 2022A358396

PATIENT
  Age: 33190 Day
  Sex: Female

DRUGS (1)
  1. SYMBICORT [Suspect]
     Active Substance: BUDESONIDE\FORMOTEROL FUMARATE DIHYDRATE
     Indication: Asthma
     Dosage: 80/4.5 MCG 2 PUFFS TWICE A DAY
     Route: 055

REACTIONS (5)
  - Illness [Fatal]
  - Fall [Fatal]
  - Feeding disorder [Fatal]
  - Dysphagia [Fatal]
  - Aphasia [Fatal]

NARRATIVE: CASE EVENT DATE: 20220629
